FAERS Safety Report 4568340-3 (Version None)
Quarter: 2005Q1

REPORT INFORMATION
  Report Type: 
  Country: None (occurrence: None)
  Receive Date: 20050131
  Receipt Date: 20050120
  Transmission Date: 20050727
  Serious: No
  Sender: FDA-Public Use
  Company Number: 2005-01-0671

PATIENT
  Age: 71 Year
  Sex: Female
  Weight: 58 kg

DRUGS (4)
  1. INTRON A [Suspect]
     Indication: HEPATITIS C
     Dosage: 3 MIU TIW SUBCUTANEOUS
     Route: 058
     Dates: start: 20030801
  2. ACETAMINOPHEN [Concomitant]
  3. CONCOR TABLETS [Concomitant]
  4. PANTOZOL (PANTOPRAZOLE) TABLETS [Concomitant]

REACTIONS (4)
  - CORNEAL INFILTRATES [None]
  - IRIDOCYCLITIS [None]
  - UVEITIS [None]
  - VITREOUS FLOATERS [None]
